FAERS Safety Report 16858580 (Version 2)
Quarter: 2019Q4

REPORT INFORMATION
  Report Type: Spontaneous
  Country: BE (occurrence: BE)
  Receive Date: 20190926
  Receipt Date: 20191023
  Transmission Date: 20200122
  Serious: Yes (Hospitalization, Other)
  Sender: FDA-Public Use
  Company Number: PHHY2019BE220989

PATIENT
  Age: 70 Year
  Sex: Female

DRUGS (5)
  1. FEMARA [Suspect]
     Active Substance: LETROZOLE
     Indication: BREAST CANCER RECURRENT
     Dosage: UNK
     Route: 065
     Dates: start: 20180528, end: 20190801
  2. KENTERA [Concomitant]
     Active Substance: OXYBUTYNIN
     Indication: PRODUCT USED FOR UNKNOWN INDICATION
     Dosage: UNK
     Route: 065
  3. HERCEPTIN [Suspect]
     Active Substance: TRASTUZUMAB
     Indication: PRODUCT USED FOR UNKNOWN INDICATION
     Dosage: 3.9 MG, QD
     Route: 065
  4. OMEPRAZOL [Concomitant]
     Active Substance: OMEPRAZOLE
     Indication: PRODUCT USED FOR UNKNOWN INDICATION
     Dosage: 20 MG, QD
     Route: 065
  5. BONVIVA [Concomitant]
     Active Substance: IBANDRONATE SODIUM
     Indication: PRODUCT USED FOR UNKNOWN INDICATION
     Dosage: 4 OT /YEAR
     Route: 065

REACTIONS (21)
  - Delirium [Recovered/Resolved]
  - Hallucination [Recovering/Resolving]
  - Balance disorder [Recovering/Resolving]
  - Depression [Recovering/Resolving]
  - Breast cancer recurrent [Unknown]
  - Speech disorder [Recovering/Resolving]
  - Confusional state [Recovering/Resolving]
  - Joint stiffness [Recovering/Resolving]
  - Gait disturbance [Recovering/Resolving]
  - Conjunctivitis [Unknown]
  - Blood cholesterol increased [Recovering/Resolving]
  - Oedema peripheral [Recovering/Resolving]
  - Muscle spasms [Recovering/Resolving]
  - Hot flush [Recovering/Resolving]
  - Myalgia [Recovering/Resolving]
  - Malaise [Recovering/Resolving]
  - Pain [Recovering/Resolving]
  - Polyneuropathy [Unknown]
  - Neuropathy peripheral [Recovering/Resolving]
  - Hypoaesthesia [Recovering/Resolving]
  - Insomnia [Recovering/Resolving]

NARRATIVE: CASE EVENT DATE: 201908
